FAERS Safety Report 25200380 (Version 1)
Quarter: 2025Q2

REPORT INFORMATION
  Report Type: Spontaneous
  Country: US (occurrence: None)
  Receive Date: 20250414
  Receipt Date: 20250414
  Transmission Date: 20250716
  Serious: No
  Sender: FDA-CTU
  Company Number: None

PATIENT
  Age: 67 Year
  Sex: Male

DRUGS (1)
  1. WELIREG [Suspect]
     Active Substance: BELZUTIFAN

REACTIONS (3)
  - Haemorrhage [None]
  - Pulmonary oedema [None]
  - Oxygen saturation decreased [None]

NARRATIVE: CASE EVENT DATE: 20250411
